FAERS Safety Report 4955391-X (Version None)
Quarter: 2006Q1

REPORT INFORMATION
  Report Type: 
  Country: None (occurrence: None)
  Receive Date: 20060328
  Receipt Date: 20060317
  Transmission Date: 20060701
  Serious: Yes (Hospitalization)
  Sender: FDA-Public Use
  Company Number: PHHO2006AR04772

PATIENT
  Age: 88 Year
  Sex: Female

DRUGS (4)
  1. MADOPAR [Concomitant]
  2. SIFROL [Concomitant]
  3. LORAZEPAM [Concomitant]
  4. ZELMAC / HTF 919A [Suspect]
     Indication: GASTROINTESTINAL DISORDER

REACTIONS (1)
  - DIARRHOEA [None]
